FAERS Safety Report 17093357 (Version 1)
Quarter: 2019Q4

REPORT INFORMATION
  Report Type: Spontaneous
  Country: US (occurrence: US)
  Receive Date: 20191129
  Receipt Date: 20191129
  Transmission Date: 20200122
  Serious: Yes (Other)
  Sender: FDA-Public Use
  Company Number: US-GLAXOSMITHKLINE-US2019GSK214167

PATIENT
  Sex: Female

DRUGS (1)
  1. SENSODYNE COMPLETE PROTECTION [Suspect]
     Active Substance: STANNOUS FLUORIDE
     Indication: HYPERAESTHESIA TEETH
     Dosage: THREE MAYBE FOUR TIMES A DAY
     Dates: start: 20191105

REACTIONS (6)
  - Skin laceration [Recovered/Resolved]
  - Product complaint [Unknown]
  - Haemorrhage [Recovered/Resolved]
  - Localised infection [Recovered/Resolved]
  - Product package associated injury [Unknown]
  - Inappropriate schedule of product administration [Unknown]
